FAERS Safety Report 7897393-X (Version None)
Quarter: 2011Q4

REPORT INFORMATION
  Report Type: 
  Country: None (occurrence: None)
  Receive Date: 20111107
  Receipt Date: 20111027
  Transmission Date: 20120403
  Serious: Yes (Other)
  Sender: FDA-Public Use
  Company Number: CA-JNJFOC-20111100080

PATIENT
  Sex: Male
  Weight: 54.8 kg

DRUGS (4)
  1. RABEPRAZOLE SODIUM [Concomitant]
     Route: 065
  2. FLAGYL [Concomitant]
     Dosage: PRN
     Route: 065
  3. CHOLESTYRAMINE [Concomitant]
     Route: 065
  4. REMICADE [Suspect]
     Indication: CROHN'S DISEASE
     Route: 042
     Dates: start: 20090106

REACTIONS (3)
  - ABDOMINAL PAIN [None]
  - NAUSEA [None]
  - DEPRESSION [None]
